FAERS Safety Report 5389569-0 (Version None)
Quarter: 2007Q3

REPORT INFORMATION
  Report Type: 
  Country: None (occurrence: None)
  Receive Date: 20070713
  Receipt Date: 20070704
  Transmission Date: 20080115
  Serious: Yes (Death)
  Sender: FDA-Public Use
  Company Number: 2007SP013412

PATIENT
  Age: 80 Year
  Sex: Female

DRUGS (18)
  1. NOXAFIL [Suspect]
     Indication: CANDIDIASIS
     Dosage: 400 MG;BID;PO
     Route: 048
     Dates: start: 20060609, end: 20060613
  2. NOVALGIN [Concomitant]
  3. VANCOMYCIN [Concomitant]
  4. CLONT [Concomitant]
  5. PASPERTIN [Concomitant]
  6. KONAKION [Concomitant]
  7. LASIX [Concomitant]
  8. ASPIRIN [Concomitant]
  9. BELOC ZOK [Concomitant]
  10. ACYCLOVIR [Concomitant]
  11. SUFENTANIL CITRATE [Concomitant]
  12. PANTOZOL [Concomitant]
  13. HUMAN INSULIN [Concomitant]
  14. HEPARIN [Concomitant]
  15. CLONIDINE HCL [Concomitant]
  16. PROPOFOL [Concomitant]
  17. MERONEM [Concomitant]
  18. MOVICOL [Concomitant]

REACTIONS (3)
  - INTESTINAL ISCHAEMIA [None]
  - INTESTINAL PERFORATION [None]
  - PERITONITIS [None]
